FAERS Safety Report 13934754 (Version 5)
Quarter: 2018Q2

REPORT INFORMATION
  Report Type: Spontaneous
  Country: US (occurrence: US)
  Receive Date: 20170905
  Receipt Date: 20180420
  Transmission Date: 20180711
  Serious: Yes (Other)
  Sender: FDA-Public Use
  Company Number: US-ACCORD-050815

PATIENT
  Age: 38 Year
  Sex: Female
  Weight: 72.57 kg

DRUGS (17)
  1. NIFEDIPINE. [Concomitant]
     Active Substance: NIFEDIPINE
     Indication: HYPERTENSION
     Dates: start: 20170518
  2. PNV [Concomitant]
     Indication: NUTRITIONAL SUPPLEMENTATION
     Dosage: RECEIVED DURING FIRST AND SECOND TRIMESTER
     Dates: start: 20170418
  3. COLACE [Concomitant]
     Active Substance: DOCUSATE SODIUM
     Indication: DIARRHOEA
     Dosage: BID?1 CAPSULE AT 7 AM AND 1 CAP AT 9 PM
     Route: 048
     Dates: start: 20160621
  4. URSODEOXYCHOLIC ACID [Concomitant]
     Active Substance: URSODIOL
     Dosage: RECEIVED WITHIN 6 WEEKS PRIOR TO CONCEPTION THEN IN FIRST AND SECOND TRIMESTER
     Dates: start: 20160621
  5. MYCOPHENOLATE MOFETIL ACCORD [Suspect]
     Active Substance: MYCOPHENOLATE MOFETIL
     Indication: LIVER TRANSPLANT
     Dosage: DAILY DOSE 2000 MG. ALSO RECEIVED FROM 12-JUN-2016 TO 18-APR-2017
     Route: 048
     Dates: start: 2001, end: 20170407
  6. MAGNESIUM OXIDE. [Concomitant]
     Active Substance: MAGNESIUM OXIDE
     Indication: NUTRITIONAL SUPPLEMENTATION
     Dosage: BID
     Route: 048
     Dates: start: 20170525
  7. PREDNISONE. [Concomitant]
     Active Substance: PREDNISONE
     Indication: IMMUNOSUPPRESSION
     Dosage: RECEIVED DURING 0-6 WEEKS PRIOR TO CONCEPTION, 1 AND 2 TRIMESTER.?1 TAB AT 7 AM
     Dates: start: 20160621
  8. CALCIUM CARBONATE. [Concomitant]
     Active Substance: CALCIUM CARBONATE
     Indication: DYSPEPSIA
     Dosage: TAKE 1 TABLET DAILY WITH FOOD
     Route: 048
     Dates: start: 20160621
  9. RIBOFLAVIN [Concomitant]
     Active Substance: RIBOFLAVIN
     Indication: HYPOVITAMINOSIS
     Dosage: RECEIVED DURING FIRST AND SECOND TRIMESTER
     Dates: start: 20170525
  10. IMURAN [Concomitant]
     Active Substance: AZATHIOPRINE
     Indication: LIVER TRANSPLANT
     Dates: start: 20170831
  11. ERGOCALCIFEROL. [Concomitant]
     Active Substance: ERGOCALCIFEROL
     Dosage: 400 IU 1 TAB QD
     Dates: start: 20160621
  12. AZATHIOPRINE. [Concomitant]
     Active Substance: AZATHIOPRINE
     Indication: LIVER TRANSPLANT
     Dosage: RECEIVED DURING 1ST AND 2ND TRIMESTER
     Dates: start: 20170503
  13. ZYRTEC [Concomitant]
     Active Substance: CETIRIZINE HYDROCHLORIDE
     Indication: HYPERSENSITIVITY
     Dosage: TAKW AS NEEDED FOR ALLERGIES(PRN)
     Route: 048
  14. ACETYLSALICYLIC ACID [Concomitant]
     Active Substance: ASPIRIN
     Indication: THROMBOSIS
     Dosage: RECEIVED WITHIN 6 WEEKS PRIOR TO CONCEPTION. 1ST AND 2ND TRIMESTER?1 TAB AT 7 AM
     Dates: start: 20160621
  15. TACROLIMUS. [Concomitant]
     Active Substance: TACROLIMUS
     Indication: IMMUNOSUPPRESSION
     Dosage: RECEIVED DURING 0-6 WEEKS PRIOR TO CONCEPTION 1 AND 2 TRIMESTER.?2 CAP AT 7 AM AND 2 CAP AT 9 PM
     Route: 048
     Dates: start: 2000
  16. ISOPHANE INSULIN [Concomitant]
     Active Substance: INSULIN NOS
     Indication: GESTATIONAL DIABETES
     Dosage: EVERY BEDTIME?TIME OF EXPOSURE FIRST AND SECOND TRIMESTER
     Route: 058
     Dates: start: 20170607
  17. NORVASC [Concomitant]
     Active Substance: AMLODIPINE BESYLATE
     Indication: HYPERTENSION
     Dosage: 1 TAB AT 8 AM GESTATIONAL AGE AT FIRST EXPOSURE WAS 10 WEEKS,
     Route: 048
     Dates: start: 20160621, end: 20170518

REACTIONS (2)
  - Proteinuria [Unknown]
  - Maternal exposure during pregnancy [Unknown]

NARRATIVE: CASE EVENT DATE: 20170810
